FAERS Safety Report 9050054 (Version 1)
Quarter: 2013Q1

REPORT INFORMATION
  Report Type: Spontaneous
  Country: US (occurrence: US)
  Receive Date: 20130204
  Receipt Date: 20130204
  Transmission Date: 20140127
  Serious: No
  Sender: FDA-Public Use
  Company Number: US-AMGEN-USASP2013006055

PATIENT
  Age: 25 Year
  Sex: Male

DRUGS (1)
  1. ENBREL [Suspect]
     Indication: ARTHRITIS
     Dosage: 50 MG EVERY  2 OR 3 WEEKS AS NEEDED
     Dates: start: 2007, end: 20130104

REACTIONS (3)
  - Arthralgia [Unknown]
  - Joint stiffness [Unknown]
  - Chlamydial infection [Recovered/Resolved]
